FAERS Safety Report 20976060 (Version 2)
Quarter: 2022Q3

REPORT INFORMATION
  Report Type: Report from Study
  Country: US (occurrence: US)
  Receive Date: 20220617
  Receipt Date: 20220805
  Transmission Date: 20221027
  Serious: Yes (Other)
  Sender: FDA-Public Use
  Company Number: US-TEVA-2022-US-2039715

PATIENT
  Age: 49 Year
  Sex: Male

DRUGS (2)
  1. AUSTEDO [Suspect]
     Active Substance: DEUTETRABENAZINE
     Indication: Tardive dyskinesia
     Dosage: 12 MILLIGRAM DAILY;
     Route: 065
     Dates: start: 20220428
  2. AUSTEDO [Suspect]
     Active Substance: DEUTETRABENAZINE
     Dosage: 18 MILLIGRAM DAILY;
     Route: 065
     Dates: start: 202205, end: 20220512

REACTIONS (6)
  - Ureter dilation procedure [Unknown]
  - Hallucination [Unknown]
  - Feeling jittery [Unknown]
  - Pain [Unknown]
  - Tremor [Unknown]
  - Drug ineffective [Unknown]

NARRATIVE: CASE EVENT DATE: 20220101
